FAERS Safety Report 7928138-2 (Version None)
Quarter: 2011Q4

REPORT INFORMATION
  Report Type: 
  Country: None (occurrence: None)
  Receive Date: 20111118
  Receipt Date: 20111107
  Transmission Date: 20120403
  Serious: No
  Sender: FDA-Public Use
  Company Number: US-B.I. PHARMACEUTICALS,INC./RIDGEFIELD-2011-BP-25774BP

PATIENT
  Age: 15 Month
  Sex: Male

DRUGS (1)
  1. ZANTAC 150 [Suspect]
     Dates: start: 20111107

REACTIONS (1)
  - ACCIDENTAL EXPOSURE [None]
